FAERS Safety Report 10370357 (Version 1)
Quarter: 2014Q3

REPORT INFORMATION
  Report Type: Report from Study
  Country: US (occurrence: US)
  Receive Date: 20140808
  Receipt Date: 20140808
  Transmission Date: 20150326
  Serious: No
  Sender: FDA-Public Use
  Company Number: US-ALEXION-A201305509

PATIENT

DRUGS (1)
  1. SOLIRIS [Suspect]
     Active Substance: ECULIZUMAB
     Indication: HAEMOLYTIC URAEMIC SYNDROME
     Dosage: UNK
     Route: 042

REACTIONS (5)
  - Catheter placement [Unknown]
  - Infection [Unknown]
  - Fatigue [Unknown]
  - Platelet count decreased [Unknown]
  - Plasmapheresis [Unknown]

NARRATIVE: CASE EVENT DATE: 2013
